FAERS Safety Report 18673393 (Version 1)
Quarter: 2020Q4

REPORT INFORMATION
  Report Type: Report from Study
  Country: US (occurrence: US)
  Receive Date: 20201229
  Receipt Date: 20201229
  Transmission Date: 20210114
  Serious: Yes (Hospitalization, Other)
  Sender: FDA-Public Use
  Company Number: US-VELOXIS PHARMACEUTICALS-2020VELUS-000071

PATIENT
  Age: 54 Year
  Sex: Female
  Weight: 111.6 kg

DRUGS (30)
  1. FERROUS SULFATE. [Concomitant]
     Active Substance: FERROUS SULFATE
     Indication: ANAEMIA
     Dosage: 325 MG, BID, 1 TABLET BY MOUTH
     Route: 048
  2. NEURONTIN [Concomitant]
     Active Substance: GABAPENTIN
     Indication: PAIN
  3. GLYCOLAX [Concomitant]
     Active Substance: POLYETHYLENE GLYCOL 3350
     Indication: CONSTIPATION
     Dosage: 17 G, PRN
     Route: 048
  4. VENTOLIN [Concomitant]
     Active Substance: ALBUTEROL SULFATE
     Indication: DYSPNOEA
     Dosage: INHALE 2 PUFFS BY MOUTH INTO LUNGS EVERY 6 HOURS AS NEEDED FOR WHEEZING OR CHEST TIGHTNESS
     Route: 065
  5. ASPIRIN 81 [Concomitant]
     Active Substance: ASPIRIN
     Indication: PROPHYLAXIS
     Dosage: 81 MG, QD, CRUSH AND TAKE 1 TABLET
     Route: 048
  6. LIPITOR [Concomitant]
     Active Substance: ATORVASTATIN CALCIUM
     Indication: HYPERLIPIDAEMIA
     Dosage: 40 MG, QD BY MOUTH AT BED TIME
     Route: 048
  7. CELLCEPT [Concomitant]
     Active Substance: MYCOPHENOLATE MOFETIL\MYCOPHENOLATE MOFETIL HYDROCHLORIDE
     Indication: PROPHYLAXIS
     Dosage: 1000 MG, BID
     Route: 048
  8. INSULIN GLARGINE [Concomitant]
     Active Substance: INSULIN GLARGINE
     Indication: DIABETES MELLITUS
     Dosage: 5 UNIT AT BED TIME
     Route: 058
  9. ZOLOFT [Concomitant]
     Active Substance: SERTRALINE HYDROCHLORIDE
     Indication: DEPRESSION
     Dosage: 50 MG, QD
     Route: 048
  10. BENADRYL [Concomitant]
     Active Substance: DIPHENHYDRAMINE HYDROCHLORIDE
     Indication: HYPERSENSITIVITY
  11. NEURONTIN [Concomitant]
     Active Substance: GABAPENTIN
     Indication: NEUROPATHY PERIPHERAL
     Dosage: 100 MG, TID
     Route: 048
  12. PROCARDIA [Concomitant]
     Active Substance: NIFEDIPINE
     Indication: HYPERTENSION
     Dosage: 60 MG, QD BY MOUTH
     Route: 048
  13. INCRUSE ELLIPTA [Concomitant]
     Active Substance: UMECLIDINIUM BROMIDE
     Indication: DYSPNOEA
     Dosage: 1 PUFF INTO LUNGS DAILY
     Route: 065
  14. PROVENTIL [Concomitant]
     Active Substance: ALBUTEROL
     Indication: DYSPNOEA
     Dosage: INHALE 2 PUFFS BY MOUTH INTO LUNGS EVERY 6 HOURS AS NEEDED FOR WHEEZING OR CHEST TIGHTNESS
     Route: 065
  15. COLACE [Concomitant]
     Active Substance: DOCUSATE SODIUM
     Indication: CONSTIPATION
     Dosage: 100 MG, BID, 1 CAPSULE BY MOUTH AS NEEDED
     Route: 048
  16. INSULIN ASPART [Concomitant]
     Active Substance: INSULIN ASPART
     Indication: DIABETES MELLITUS
     Dosage: INJECT SUBCUTANEOUSLY WITH MEANS PER SLIDING SCALE: 1UNIT FOR BLOOD GLUCOSE 150-199 MG/DL, 2UNITS FO
     Route: 058
  17. ROBAXIN [Concomitant]
     Active Substance: METHOCARBAMOL
     Indication: BACK PAIN
     Dosage: 1000 MG, TID BY MOUTH
     Route: 048
  18. ENVARSUS XR [Suspect]
     Active Substance: TACROLIMUS
     Dosage: 15 MG
     Route: 048
  19. TYLENOL [Concomitant]
     Active Substance: ACETAMINOPHEN
     Indication: PAIN
     Dosage: 325 MG, Q8H
     Route: 048
  20. ZYRTEC [Concomitant]
     Active Substance: CETIRIZINE HYDROCHLORIDE
     Indication: HYPERSENSITIVITY
     Dosage: 5 MG, QD
     Route: 048
  21. ENVARSUS XR [Suspect]
     Active Substance: TACROLIMUS
     Indication: PROPHYLAXIS AGAINST TRANSPLANT REJECTION
     Dosage: 19 MG
     Route: 048
     Dates: start: 20191223
  22. BENADRYL [Concomitant]
     Active Substance: DIPHENHYDRAMINE HYDROCHLORIDE
     Indication: PRURITUS
     Dosage: 25 MG, Q6H AS NEEDED
     Route: 048
  23. PRILOSEC [Concomitant]
     Active Substance: OMEPRAZOLE MAGNESIUM
     Indication: GASTROOESOPHAGEAL REFLUX DISEASE
     Dosage: 20 MG, QD, BY MOUTH
     Route: 048
  24. ZOFRAN [Concomitant]
     Active Substance: ONDANSETRON HYDROCHLORIDE
     Indication: NAUSEA
     Dosage: 4 MG, Q8H, AS NEEDED
     Route: 048
  25. DESYREL [Concomitant]
     Active Substance: TRAZODONE HYDROCHLORIDE
     Indication: DEPRESSION
     Dosage: 50 MG, QD, BY MOUTH AT BED TIME
     Route: 048
  26. VALCYTE [Concomitant]
     Active Substance: VALGANCICLOVIR HYDROCHLORIDE
     Indication: ANTIVIRAL PROPHYLAXIS
     Dosage: 450 MG, QD BY MOUTH
     Route: 048
  27. ENVARSUS XR [Suspect]
     Active Substance: TACROLIMUS
     Dosage: 20 MG, QD
     Route: 048
     Dates: start: 20200103, end: 20200125
  28. ENVARSUS XR [Suspect]
     Active Substance: TACROLIMUS
     Dosage: 16 MG
     Route: 065
     Dates: start: 20200125
  29. PROAIR HFA [Concomitant]
     Active Substance: ALBUTEROL SULFATE
     Indication: DYSPNOEA
     Dosage: INHALE 2 PUFFS BY MOUTH INTO LUNGS EVERY 6 HOURS AS NEEDED FOR WHEEZING OR CHEST TIGHTNESS
     Route: 065
  30. BACTRIM [Concomitant]
     Active Substance: SULFAMETHOXAZOLE\TRIMETHOPRIM
     Indication: ANTIFUNGAL PROPHYLAXIS
     Dosage: TAKE 1 TABLET BY MOUTH EVERY MONDAY, WEDNESDAY AND FRIDAY
     Route: 048

REACTIONS (2)
  - Acute kidney injury [Recovering/Resolving]
  - Transplant rejection [Recovered/Resolved]

NARRATIVE: CASE EVENT DATE: 20200108
